FAERS Safety Report 25831455 (Version 1)
Quarter: 2025Q3

REPORT INFORMATION
  Report Type: Spontaneous
  Country: US (occurrence: US)
  Receive Date: 20250922
  Receipt Date: 20250922
  Transmission Date: 20251021
  Serious: No
  Sender: MYLAN
  Company Number: US-MYLANLABS-2025M1076786

PATIENT
  Age: 78 Year
  Sex: Female
  Weight: 58.97 kg

DRUGS (3)
  1. WIXELA INHUB [Suspect]
     Active Substance: FLUTICASONE PROPIONATE\SALMETEROL XINAFOATE
     Indication: Lung disorder
     Dosage: 250/50 MICROGRAM, BID (TWICE A DAY, ONCE IN THE MORNING AND ONCE IN THE EVENING)
     Dates: start: 2025
  2. Algaecal [Concomitant]
     Indication: Bone disorder
     Dosage: UNK, BID (TWICE A DAY)
  3. STRONTIUM [Concomitant]
     Active Substance: STRONTIUM
     Dosage: 1 DOSAGE FORM, PM (TAKING ONE DOSE AT NIGHT)

REACTIONS (3)
  - Chest pain [Recovered/Resolved]
  - Hypoaesthesia [Unknown]
  - Off label use [Unknown]

NARRATIVE: CASE EVENT DATE: 20250823
